FAERS Safety Report 7312130-5 (Version None)
Quarter: 2011Q1

REPORT INFORMATION
  Report Type: 
  Country: None (occurrence: None)
  Receive Date: 20110224
  Receipt Date: 20110214
  Transmission Date: 20110831
  Serious: Yes (Death, Hospitalization)
  Sender: FDA-Public Use
  Company Number: DE-PFIZER INC-2011032864

PATIENT
  Age: 60 Year
  Sex: Female
  Weight: 78 kg

DRUGS (10)
  1. TEMSIROLIMUS [Suspect]
     Indication: METASTATIC RENAL CELL CARCINOMA
     Dosage: 25 MG, WEEKLY
     Route: 042
     Dates: start: 20101126, end: 20110106
  2. ALLOPURINOL [Concomitant]
     Dosage: 150 MG, 1X/DAY
  3. CIPROBAY [Concomitant]
     Dosage: 250 MG, 2X/DAY
     Dates: start: 20101229, end: 20110107
  4. TRAMAL [Concomitant]
     Dosage: 20 DF, 3X/DAY
  5. COTRIM [Concomitant]
     Dosage: ONCE A DAY ON MONDAY/WEDNESDAY/FRIDAY
  6. SPIRONOLACTONE [Concomitant]
     Dosage: 100 MG, 1X/DAY
  7. LASIX [Concomitant]
     Dosage: 40 MG, 3X/DAY
  8. ARIXTRA [Concomitant]
     Dosage: 2.5 ML, 1X/DAY
  9. BELOC ZOK [Concomitant]
     Dosage: 47.5 MG, 1X/DAY
  10. PANTOZOL [Concomitant]
     Dosage: 40 MG, 1X/DAY

REACTIONS (2)
  - RENAL CELL CARCINOMA [None]
  - DISEASE PROGRESSION [None]
